FAERS Safety Report 11429317 (Version 1)
Quarter: 2015Q3

REPORT INFORMATION
  Report Type: Spontaneous
  Country: US (occurrence: US)
  Receive Date: 20150828
  Receipt Date: 20150828
  Transmission Date: 20151125
  Serious: No
  Sender: FDA-Public Use
  Company Number: US-ROCHE-1175223

PATIENT
  Sex: Female

DRUGS (4)
  1. LOPRESSOR [Concomitant]
     Active Substance: METOPROLOL TARTRATE
     Indication: BLOOD PRESSURE MEASUREMENT
     Route: 065
  2. PEGASYS [Suspect]
     Active Substance: PEGINTERFERON ALFA-2A
     Indication: HEPATITIS C
     Route: 058
     Dates: start: 20121207
  3. HCTZ [Concomitant]
     Active Substance: HYDROCHLOROTHIAZIDE
     Route: 065
  4. COPEGUS [Suspect]
     Active Substance: RIBAVIRIN
     Indication: HEPATITIS C
     Route: 048
     Dates: start: 20121207

REACTIONS (18)
  - Pyrexia [Unknown]
  - Weight decreased [Unknown]
  - Movement disorder [Unknown]
  - Hypotension [Unknown]
  - Dysgeusia [Unknown]
  - Injection site erythema [Unknown]
  - Fatigue [Unknown]
  - Blood potassium decreased [Recovered/Resolved]
  - Contusion [Unknown]
  - Viral load undetectable [Unknown]
  - Nausea [Unknown]
  - Dyspnoea [Unknown]
  - Chills [Not Recovered/Not Resolved]
  - Injection site reaction [Unknown]
  - Feeling cold [Unknown]
  - Hypoalbuminaemia [Unknown]
  - Blood bilirubin abnormal [Unknown]
  - Hyperhidrosis [Unknown]
